FAERS Safety Report 9068646 (Version 1)
Quarter: 2013Q1

REPORT INFORMATION
  Report Type: Spontaneous
  Country: IT (occurrence: IT)
  Receive Date: 20130206
  Receipt Date: 20130206
  Transmission Date: 20140127
  Serious: Yes (Hospitalization)
  Sender: FDA-Public Use
  Company Number: IT-PFIZER INC-2013039944

PATIENT
  Age: 43 Year
  Sex: Male

DRUGS (2)
  1. MEDROL [Suspect]
     Indication: NECK PAIN
     Dosage: 16 MG, SINGLE
     Route: 048
     Dates: start: 20120105, end: 20120105
  2. PANTOPRAZOLE [Concomitant]
     Dosage: 40 MG, UNK
     Route: 048

REACTIONS (2)
  - Abdominal pain upper [Unknown]
  - Dysgeusia [Unknown]
